FAERS Safety Report 4740708-1 (Version None)
Quarter: 2005Q3

REPORT INFORMATION
  Report Type: 
  Country: None (occurrence: None)
  Receive Date: 20050810
  Receipt Date: 20050803
  Transmission Date: 20060218
  Serious: Yes (Hospitalization)
  Sender: FDA-Public Use
  Company Number: FR-GLAXOSMITHKLINE-B0389976A

PATIENT
  Age: 52 Year
  Sex: Male
  Weight: 70 kg

DRUGS (1)
  1. AUGMENTIN '125' [Suspect]
     Indication: TOOTH INFECTION
     Dosage: 1UNIT SINGLE DOSE
     Route: 048
     Dates: start: 20050626, end: 20050626

REACTIONS (11)
  - ANAPHYLACTIC SHOCK [None]
  - DIARRHOEA [None]
  - HYPERHIDROSIS [None]
  - HYPOTENSION [None]
  - HYPOXIA [None]
  - NAUSEA [None]
  - OESOPHAGEAL SPASM [None]
  - PALLOR [None]
  - PRURIGO [None]
  - SYNCOPE VASOVAGAL [None]
  - VOMITING [None]
